FAERS Safety Report 9466430 (Version 1)
Quarter: 2013Q3

REPORT INFORMATION
  Report Type: Spontaneous
  Country: US (occurrence: None)
  Receive Date: 20130816
  Receipt Date: 20130816
  Transmission Date: 20140515
  Serious: Yes (Other)
  Sender: FDA-Public Use
  Company Number: None

PATIENT
  Age: 7 Year
  Sex: Female
  Weight: 27.7 kg

DRUGS (1)
  1. CEFTRIAXONE [Suspect]
     Indication: PYELONEPHRITIS ACUTE
     Dosage: 1000 MG ONE IV
     Dates: start: 20130804

REACTIONS (2)
  - Anaphylactic reaction [None]
  - Product quality issue [None]
